FAERS Safety Report 22227743 (Version 1)
Quarter: 2023Q2

REPORT INFORMATION
  Report Type: Spontaneous
  Country: US (occurrence: None)
  Receive Date: 20230417
  Receipt Date: 20230417
  Transmission Date: 20230722
  Serious: Yes (Hospitalization)
  Sender: FDA-Public Use
  Company Number: None

PATIENT
  Age: 67 Year
  Sex: Male

DRUGS (1)
  1. VOSEVI [Suspect]
     Active Substance: SOFOSBUVIR\VELPATASVIR\VOXILAPREVIR
     Indication: Chronic hepatitis C
     Dosage: OTHER QUANTITY : 400-100-100 MG;?FREQUENCY : DAILY;?
     Route: 048
     Dates: start: 20230208

REACTIONS (1)
  - Hip fracture [None]

NARRATIVE: CASE EVENT DATE: 20230416
